FAERS Safety Report 4435737-1 (Version None)
Quarter: 2004Q3

REPORT INFORMATION
  Report Type: 
  Country: None (occurrence: None)
  Receive Date: 20040826
  Receipt Date: 20040813
  Transmission Date: 20050211
  Serious: Yes (Hospitalization, Other)
  Sender: FDA-Public Use
  Company Number: 2004056351

PATIENT
  Age: 43 Year
  Sex: Female

DRUGS (8)
  1. DILANTIN [Suspect]
     Indication: CONVULSION
     Dosage: 300 MG
  2. PHENOBARBITAL TAB [Suspect]
     Indication: CONVULSION
     Dosage: 60 MG
  3. ACETAMINOPHEN [Concomitant]
  4. AMOXICILLIN [Concomitant]
  5. FAMOTIDINE [Concomitant]
  6. METHYLPREDNISOLONE [Concomitant]
  7. CEFTRIAXONE [Concomitant]
  8. DIPHENHYDRAMINE HCL [Concomitant]

REACTIONS (26)
  - ATELECTASIS [None]
  - BAND NEUTROPHIL PERCENTAGE INCREASED [None]
  - BILIRUBIN CONJUGATED INCREASED [None]
  - COUGH [None]
  - DERMATITIS [None]
  - DERMATITIS EXFOLIATIVE [None]
  - DRUG HYPERSENSITIVITY [None]
  - DYSPNOEA [None]
  - EOSINOPHIL PERCENTAGE INCREASED [None]
  - ERYTHEMA [None]
  - HYPERKALAEMIA [None]
  - LYMPHADENOPATHY [None]
  - OEDEMA PERIPHERAL [None]
  - OROPHARYNGEAL NEOPLASM [None]
  - PERIORBITAL OEDEMA [None]
  - PNEUMONIA [None]
  - PRURITUS [None]
  - PYREXIA [None]
  - PYURIA [None]
  - RASH [None]
  - RASH ERYTHEMATOUS [None]
  - RASH MACULO-PAPULAR [None]
  - SWELLING FACE [None]
  - TRANSAMINASES INCREASED [None]
  - TRICHOMONIASIS [None]
  - URINARY TRACT INFECTION [None]
